FAERS Safety Report 8506636 (Version 3)
Quarter: 2012Q4

REPORT INFORMATION
  Report Type: 
  Country: ES (occurrence: ES)
  Receive Date: 20120412
  Receipt Date: 20121107
  Transmission Date: 20130627
  Serious: Yes (Hospitalization, Other)
  Sender: FDA-Public Use
  Company Number: ES-ELI_LILLY_AND_COMPANY-ES201204002257

PATIENT
  Sex: Female

DRUGS (1)
  1. FORSTEO [Suspect]
     Dosage: UNK, unknown
     Route: 065
     Dates: start: 20110718, end: 20120926

REACTIONS (5)
  - Spinal fracture [Unknown]
  - Abdominal distension [Unknown]
  - Abdominal rigidity [Unknown]
  - Spinal pain [Unknown]
  - No therapeutic response [Not Recovered/Not Resolved]
